FAERS Safety Report 7746295-8 (Version None)
Quarter: 2011Q3

REPORT INFORMATION
  Report Type: 
  Country: None (occurrence: None)
  Receive Date: 20110913
  Receipt Date: 20110902
  Transmission Date: 20111222
  Serious: Yes (Hospitalization, Other)
  Sender: FDA-Public Use
  Company Number: AU-ELI_LILLY_AND_COMPANY-AU201109000895

PATIENT
  Sex: Female
  Weight: 54 kg

DRUGS (19)
  1. GRANISETRON [Concomitant]
     Indication: PROPHYLAXIS
     Dosage: UNK
     Route: 042
     Dates: start: 20110722
  2. ATIVAN [Concomitant]
     Indication: ANXIETY
     Dosage: UNK
     Dates: start: 20110721
  3. BUPRENORPHINE [Concomitant]
     Indication: OSTEOARTHRITIS
     Dosage: UNK
     Route: 050
     Dates: start: 20110622, end: 20110622
  4. CODEINE W/PARACETAMOL [Concomitant]
     Indication: ABDOMINAL PAIN UPPER
     Dosage: UNK
     Route: 048
     Dates: start: 20110601
  5. PANADEINE CO [Concomitant]
     Indication: PAIN
     Dosage: UNK
     Route: 048
     Dates: start: 20070101
  6. PACLITAXEL [Suspect]
     Indication: PANCREATIC CARCINOMA METASTATIC
     Dosage: 125 MG/M2, UNK
     Dates: start: 20110722, end: 20110729
  7. GRANISETRON [Concomitant]
     Dosage: UNK
     Route: 048
     Dates: start: 20110723
  8. ENALAPRIL MALEATE [Concomitant]
     Indication: HYPERTENSION
     Dosage: 10/20 MG, UNK
     Route: 048
     Dates: start: 20080101
  9. ASPIRIN [Concomitant]
     Indication: PROPHYLAXIS
     Dosage: 100 MG, UNK
     Route: 048
     Dates: start: 20070101
  10. SYMBICORT [Concomitant]
     Indication: EMPHYSEMA
     Dosage: UNK
     Route: 055
     Dates: start: 20070101
  11. GEMCITABINE HYDROCHLORIDE [Suspect]
     Indication: PANCREATIC CARCINOMA METASTATIC
     Dosage: 1000 MG/M2, UNK
     Dates: start: 20110722, end: 20110729
  12. SODIUM CHLORIDE [Concomitant]
     Dosage: UNK
     Dates: start: 20110803
  13. METOCLOPRAMIDE [Concomitant]
     Indication: NAUSEA
     Dosage: UNK
     Route: 048
     Dates: start: 20110701
  14. DEXAMETHASONE [Concomitant]
     Indication: NAUSEA
     Dosage: UNK
     Route: 042
     Dates: start: 20110801
  15. LOPERAMIDE HCL [Concomitant]
     Indication: DIARRHOEA
     Dosage: UNK
     Route: 048
     Dates: start: 20110731
  16. SODIUM CHLORIDE [Concomitant]
     Indication: NAUSEA
     Dosage: UNK
     Dates: start: 20110801, end: 20110801
  17. SODIUM CHLORIDE [Concomitant]
     Dosage: UNK
     Dates: start: 20110802
  18. DIAZEPAM [Concomitant]
     Indication: ANXIETY
     Dosage: UNK
     Route: 048
     Dates: start: 20060101
  19. METOCLOPRAMIDE [Concomitant]
     Dosage: UNK
     Route: 042
     Dates: start: 20110801, end: 20110801

REACTIONS (4)
  - ATRIAL FIBRILLATION [None]
  - DIARRHOEA [None]
  - DEHYDRATION [None]
  - LOSS OF CONSCIOUSNESS [None]
